FAERS Safety Report 23401922 (Version 4)
Quarter: 2024Q3

REPORT INFORMATION
  Report Type: Spontaneous
  Country: DE (occurrence: DE)
  Receive Date: 20240115
  Receipt Date: 20240711
  Transmission Date: 20241017
  Serious: Yes (Death, Life-Threatening, Other)
  Sender: SANOFI AVENTIS
  Company Number: None

PATIENT
  Age: 74 Year

DRUGS (13)
  1. OXALIPLATIN [Suspect]
     Active Substance: OXALIPLATIN
     Indication: Cholangiocarcinoma
     Dosage: 100 MG/M2, QOW
     Dates: start: 201907, end: 202002
  2. FOLIC ACID [Suspect]
     Active Substance: FOLIC ACID
     Indication: Cholangiocarcinoma
     Dosage: 400 MG/M2; EVERY 2 WEEKS
     Dates: start: 201907, end: 202002
  3. FOLIC ACID [Suspect]
     Active Substance: FOLIC ACID
     Dosage: 400 MG/M2; EVERY 2 WEEKS
     Dates: end: 202003
  4. PEMIGATINIB [Suspect]
     Active Substance: PEMIGATINIB
     Indication: Cholangiocarcinoma
     Dosage: 13.5 MG, QD (FOR 2 WEEKS, FOLLOWED BY 1-WEEK PAUSE)
     Dates: start: 202005, end: 2021
  5. PEMIGATINIB [Suspect]
     Active Substance: PEMIGATINIB
     Dosage: 9 MG, QD ( (FOR 2 WEEKS FOLLOWED BY 1-WEEKPAUSE)
     Dates: start: 2021, end: 202108
  6. CISPLATIN [Suspect]
     Active Substance: CISPLATIN
     Indication: Cholangiocarcinoma
     Dosage: 25 MG/M2 (ON DAY 1 AND 8)
     Dates: start: 201711, end: 201907
  7. IRINOTECAN [Suspect]
     Active Substance: IRINOTECAN
     Indication: Cholangiocarcinoma
     Dosage: 180 MG/M2, QOW
     Dates: start: 202002, end: 202003
  8. FLUOROURACIL [Suspect]
     Active Substance: FLUOROURACIL
     Indication: Cholangiocarcinoma
     Dosage: 400 MG/M2, QOW (EVERY 2 WEEKS)
     Route: 040
     Dates: start: 201907, end: 202002
  9. FLUOROURACIL [Suspect]
     Active Substance: FLUOROURACIL
     Dosage: 3000 MG/M2; 48-H INFUSION, EVERY 2 WEEKS
     Route: 042
     Dates: start: 201907, end: 202002
  10. FLUOROURACIL [Suspect]
     Active Substance: FLUOROURACIL
     Dosage: 400 MG/M2; EVERY 2 WEEKS
     Route: 040
     Dates: end: 202002
  11. FLUOROURACIL [Suspect]
     Active Substance: FLUOROURACIL
     Dosage: 2400 MG/M2; 48-H INFUSION, EVERY 2 WEEKS
     Route: 042
     Dates: end: 202003
  12. GEMCITABINE [Suspect]
     Active Substance: GEMCITABINE
     Indication: Cholangiocarcinoma
     Dosage: 1000 MG/M2 (ON DAY 1 AND 8)
     Dates: start: 201711, end: 201907
  13. ERYTHROPOIETIN [Concomitant]
     Active Substance: ERYTHROPOIETIN
     Indication: Anaemia
     Dosage: UNK

REACTIONS (3)
  - Pneumonia [Fatal]
  - Myelodysplastic syndrome [Fatal]
  - Acute myeloid leukaemia [Fatal]

NARRATIVE: CASE EVENT DATE: 20210101
